FAERS Safety Report 4819868-X (Version None)
Quarter: 2005Q4

REPORT INFORMATION
  Report Type: 
  Country: None (occurrence: None)
  Receive Date: 20051102
  Receipt Date: 20051020
  Transmission Date: 20060501
  Serious: Yes (Death)
  Sender: FDA-Public Use
  Company Number: 2005146395

PATIENT
  Age: 36 Year
  Sex: Female

DRUGS (1)
  1. ZELDOX (CAPSULES)  (ZIPRASIDONE) [Suspect]
     Indication: SCHIZOPHRENIA, PARANOID TYPE
     Dosage: 120 MG (60 MG, 2 IN 1 D), ORAL
     Route: 048
     Dates: start: 20050705

REACTIONS (1)
  - COMPLETED SUICIDE [None]
